FAERS Safety Report 5566753-4 (Version None)
Quarter: 2007Q4

REPORT INFORMATION
  Report Type: 
  Country: None (occurrence: None)
  Receive Date: 20071218
  Receipt Date: 20071218
  Transmission Date: 20080405
  Serious: No
  Sender: FDA-Public Use
  Company Number: None

PATIENT

DRUGS (2)
  1. SEROQUEL [Suspect]
     Indication: ANXIOLYTIC THERAPY
     Dates: start: 20070911, end: 20071215
  2. SEROQUEL [Suspect]
     Indication: HYPNOTHERAPY
     Dates: start: 20070911, end: 20071215

REACTIONS (1)
  - OFF LABEL USE [None]
